FAERS Safety Report 19935573 (Version 4)
Quarter: 2022Q1

REPORT INFORMATION
  Report Type: Spontaneous
  Country: US (occurrence: US)
  Receive Date: 20211008
  Receipt Date: 20220228
  Transmission Date: 20220423
  Serious: Yes (Hospitalization, Other)
  Sender: FDA-Public Use
  Company Number: US-SA-SAC20211006001051

PATIENT
  Sex: Female
  Weight: 52 kg

DRUGS (8)
  1. DUPIXENT [Suspect]
     Active Substance: DUPILUMAB
     Indication: Dermatitis
     Dosage: 300 MG, QOW
     Route: 058
  2. AMLODIPINE BESYLATE [Concomitant]
     Active Substance: AMLODIPINE BESYLATE
  3. MIRTAZAPINE [Concomitant]
     Active Substance: MIRTAZAPINE
  4. TRIAMCINOLONE ACETONIDE [Concomitant]
     Active Substance: TRIAMCINOLONE ACETONIDE
  5. FAMOTIDINE [Concomitant]
     Active Substance: FAMOTIDINE
  6. ATORVASTATIN CALCIUM [Concomitant]
     Active Substance: ATORVASTATIN CALCIUM
  7. VALACYCLOVIR HYDROCHLORIDE [Concomitant]
     Active Substance: VALACYCLOVIR HYDROCHLORIDE
  8. PERMETHRIN [Concomitant]
     Active Substance: PERMETHRIN
     Indication: Dermatitis

REACTIONS (5)
  - Blood iron decreased [Recovered/Resolved]
  - Lower gastrointestinal haemorrhage [Unknown]
  - Breast abscess [Unknown]
  - Product dose omission issue [Unknown]
  - Product use in unapproved indication [Unknown]
